FAERS Safety Report 25119726 (Version 1)
Quarter: 2025Q1

REPORT INFORMATION
  Report Type: Spontaneous
  Country: PT (occurrence: PT)
  Receive Date: 20250325
  Receipt Date: 20250325
  Transmission Date: 20250409
  Serious: Yes (Hospitalization)
  Sender: ALEXION PHARMACEUTICALS
  Company Number: PT-SA-2025SA081593

PATIENT
  Age: 5 Month

DRUGS (2)
  1. BEYFORTUS [Suspect]
     Active Substance: NIRSEVIMAB-ALIP
  2. Vigantol [Concomitant]
     Indication: Supplementation therapy
     Dosage: 1 DROP/DAY (667 IU/DAY)
     Route: 065

REACTIONS (1)
  - Respiratory syncytial virus infection [Not Recovered/Not Resolved]
